FAERS Safety Report 16771085 (Version 5)
Quarter: 2019Q3

REPORT INFORMATION
  Report Type: Report from Study
  Country: CA (occurrence: CA)
  Receive Date: 20190904
  Receipt Date: 20190919
  Transmission Date: 20191005
  Serious: Yes (Hospitalization)
  Sender: FDA-Public Use
  Company Number: CA-BIOGEN-2018BI00676306

PATIENT
  Sex: Female

DRUGS (3)
  1. TYSABRI [Suspect]
     Active Substance: NATALIZUMAB
     Indication: MULTIPLE SCLEROSIS
     Dosage: INFUSED FOR OVER 1 HR
     Route: 042
     Dates: start: 20120816
  2. TYSABRI [Suspect]
     Active Substance: NATALIZUMAB
     Dosage: INFUSED FOR OVER 1 HRS
     Route: 050
     Dates: start: 20180816
  3. TYSABRI [Suspect]
     Active Substance: NATALIZUMAB
     Dosage: INFUSED FOR OVER 1 HRS
     Route: 050
     Dates: start: 20180816

REACTIONS (13)
  - Prescribed underdose [Unknown]
  - Blood urine present [Unknown]
  - Nephrolithiasis [Not Recovered/Not Resolved]
  - Cervical incompetence [Unknown]
  - Pain in extremity [Not Recovered/Not Resolved]
  - Maternal exposure during pregnancy [Not Recovered/Not Resolved]
  - Infection [Unknown]
  - Hypertonic bladder [Unknown]
  - Inappropriate schedule of product administration [Unknown]
  - Calculus urethral [Unknown]
  - Dysuria [Unknown]
  - Premature delivery [Unknown]
  - Premature labour [Unknown]
